FAERS Safety Report 5843739-3 (Version None)
Quarter: 2008Q3

REPORT INFORMATION
  Report Type: 
  Country: None (occurrence: None)
  Receive Date: 20080813
  Receipt Date: 20080527
  Transmission Date: 20090109
  Serious: Yes (Other)
  Sender: FDA-Public Use
  Company Number: US-BRISTOL-MYERS SQUIBB COMPANY-14208342

PATIENT

DRUGS (2)
  1. IXEMPRA KIT [Suspect]
  2. TEMODAR [Suspect]

REACTIONS (1)
  - NEUTROPENIA [None]
